FAERS Safety Report 9699819 (Version 1)
Quarter: 2013Q4

REPORT INFORMATION
  Report Type: Spontaneous
  Country: US (occurrence: US)
  Receive Date: 20131120
  Receipt Date: 20131120
  Transmission Date: 20140711
  Serious: No
  Sender: FDA-Public Use
  Company Number: US-009507513-1311USA003570

PATIENT
  Sex: Female

DRUGS (6)
  1. COSOPT PF [Suspect]
     Indication: GLAUCOMA
     Dosage: 1 DROP IN EACH EYE TWICE A DAY
     Route: 047
     Dates: end: 201308
  2. ERYTHROMYCIN [Concomitant]
  3. ZIOPTAN [Concomitant]
  4. ZOLOFT [Concomitant]
  5. LORAZEPAM [Concomitant]
  6. PREDNISOLONE ACETATE [Concomitant]

REACTIONS (3)
  - Sensory level abnormal [Not Recovered/Not Resolved]
  - Dizziness [Not Recovered/Not Resolved]
  - Fatigue [Not Recovered/Not Resolved]
